FAERS Safety Report 5758150-3 (Version None)
Quarter: 2008Q2

REPORT INFORMATION
  Report Type: 
  Country: None (occurrence: None)
  Receive Date: 20080530
  Receipt Date: 20080521
  Transmission Date: 20081010
  Serious: Yes (Hospitalization)
  Sender: FDA-Public Use
  Company Number: 2008SP007448

PATIENT
  Age: 75 Year
  Sex: Male

DRUGS (2)
  1. CELESTAMINE TAB [Suspect]
     Indication: RHINITIS ALLERGIC
     Dosage: 1 DF; ; PO, 1 DF; ; PO
     Route: 048
     Dates: start: 19990101, end: 20070501
  2. CELESTAMINE TAB [Suspect]
     Indication: RHINITIS ALLERGIC
     Dosage: 1 DF; ; PO, 1 DF; ; PO
     Route: 048
     Dates: start: 20070818, end: 20071009

REACTIONS (6)
  - ADRENAL INSUFFICIENCY [None]
  - ANOREXIA [None]
  - AORTIC ANEURYSM [None]
  - BACTERAEMIA [None]
  - HYPONATRAEMIA [None]
  - INAPPROPRIATE ANTIDIURETIC HORMONE SECRETION [None]
